FAERS Safety Report 8414539-5 (Version None)
Quarter: 2012Q2

REPORT INFORMATION
  Report Type: 
  Country: None (occurrence: None)
  Receive Date: 20120605
  Receipt Date: 20120530
  Transmission Date: 20120825
  Serious: Yes (Other)
  Sender: FDA-Public Use
  Company Number: US-B.I. PHARMACEUTICALS,INC./RIDGEFIELD-2012-EU-02935GD

PATIENT

DRUGS (1)
  1. DABIGATRAN [Suspect]
     Indication: ATRIAL FIBRILLATION

REACTIONS (1)
  - TRANSIENT ISCHAEMIC ATTACK [None]
